FAERS Safety Report 6431804-1 (Version None)
Quarter: 2009Q4

REPORT INFORMATION
  Report Type: 
  Country: None (occurrence: None)
  Receive Date: 20091104
  Receipt Date: 20091020
  Transmission Date: 20100525
  Serious: Yes (Hospitalization)
  Sender: FDA-Public Use
  Company Number: 1000009757

PATIENT
  Age: 21 Year
  Sex: Female

DRUGS (2)
  1. CITALOPRAM HYDROBROMIDE [Suspect]
     Indication: DEPRESSION
     Dosage: 20 MG (20 MG, 1 IN 1 D), ORAL
     Route: 048
     Dates: start: 20080801, end: 20090420
  2. RIVOTRIL (2.5 MILLIGRAM/MILLILITERS, SOLUTION) [Suspect]
     Dosage: 15 GTT (15 GTT, 1 IN 1 D), ORAL
     Route: 048
     Dates: start: 20080801

REACTIONS (6)
  - BREECH PRESENTATION [None]
  - CAESAREAN SECTION [None]
  - DRUG EXPOSURE DURING PREGNANCY [None]
  - METRORRHAGIA [None]
  - PREGNANCY [None]
  - THREATENED LABOUR [None]
